FAERS Safety Report 23844396 (Version 1)
Quarter: 2024Q2

REPORT INFORMATION
  Report Type: Report from Study
  Country: ES (occurrence: ES)
  Receive Date: 20240510
  Receipt Date: 20240510
  Transmission Date: 20240716
  Serious: Yes (Death, Hospitalization)
  Sender: FDA-Public Use
  Company Number: ES-BoehringerIngelheim-2022-BI-183184

PATIENT
  Age: 74 Year
  Sex: Male
  Weight: 62.3 kg

DRUGS (6)
  1. OFEV [Suspect]
     Active Substance: NINTEDANIB
     Indication: Idiopathic pulmonary fibrosis
     Route: 048
     Dates: start: 20220404, end: 202208
  2. OFEV [Suspect]
     Active Substance: NINTEDANIB
     Route: 048
     Dates: start: 202208
  3. SIMVASTATIN [Concomitant]
     Active Substance: SIMVASTATIN
     Indication: Blood cholesterol abnormal
     Route: 048
     Dates: start: 20190701
  4. ASPIRIN [Concomitant]
     Active Substance: ASPIRIN
     Indication: Blood viscosity decreased
     Route: 048
     Dates: start: 20190701
  5. QUETIAPINE STADA [Concomitant]
     Indication: Depression
     Route: 048
     Dates: start: 20211226
  6. SERC [THIORIDAZINE] [Concomitant]
     Indication: Vertigo
     Route: 048
     Dates: start: 20210605

REACTIONS (7)
  - Death [Fatal]
  - COVID-19 [Recovered/Resolved]
  - Idiopathic pulmonary fibrosis [Not Recovered/Not Resolved]
  - Weight decreased [Not Recovered/Not Resolved]
  - Diarrhoea [Not Recovered/Not Resolved]
  - Gastroenteritis viral [Recovered/Resolved]
  - Constipation [Not Recovered/Not Resolved]

NARRATIVE: CASE EVENT DATE: 20220509
